FAERS Safety Report 4420554-9 (Version None)
Quarter: 2004Q3

REPORT INFORMATION
  Report Type: 
  Country: None (occurrence: None)
  Receive Date: 20040809
  Receipt Date: 20040329
  Transmission Date: 20050211
  Serious: No
  Sender: FDA-Public Use
  Company Number: US-GLAXOSMITHKLINE-A0504911A

PATIENT
  Age: 75 Year
  Sex: Male

DRUGS (3)
  1. PAXIL CR [Suspect]
     Indication: DEPRESSION
     Dosage: 12.5MG PER DAY
     Route: 048
     Dates: start: 20040328
  2. ENALAPRIL MALEATE [Concomitant]
  3. ACIPHEX [Concomitant]

REACTIONS (2)
  - DIARRHOEA [None]
  - NAUSEA [None]
